FAERS Safety Report 4926555-6 (Version None)
Quarter: 2006Q1

REPORT INFORMATION
  Report Type: 
  Country: None (occurrence: None)
  Receive Date: 20060228
  Receipt Date: 20050429
  Transmission Date: 20060701
  Serious: No
  Sender: FDA-Public Use
  Company Number: US-GLAXOSMITHKLINE-A0556669A

PATIENT
  Age: 50 Year
  Sex: Female
  Weight: 104.5 kg

DRUGS (3)
  1. LAMICTAL [Suspect]
     Indication: BIPOLAR DISORDER
     Dosage: 150MG UNKNOWN
     Route: 048
     Dates: start: 20050112, end: 20050425
  2. VALPROIC ACID [Concomitant]
     Dosage: 1000MG UNKNOWN
     Route: 065
  3. CONCURRENT MEDICATIONS [Concomitant]

REACTIONS (4)
  - EAR PAIN [None]
  - LOCAL SWELLING [None]
  - RASH [None]
  - SWOLLEN TONGUE [None]
